FAERS Safety Report 10459989 (Version 1)
Quarter: 2014Q3

REPORT INFORMATION
  Report Type: Report from Study
  Country: US (occurrence: US)
  Receive Date: 20140917
  Receipt Date: 20140917
  Transmission Date: 20150326
  Serious: Yes (Hospitalization)
  Sender: FDA-Public Use
  Company Number: US-ABBVIE-14K-163-1282373-00

PATIENT
  Age: 53 Year
  Sex: Female

DRUGS (8)
  1. HYDROXYCHLOROQUINE [Concomitant]
     Active Substance: HYDROXYCHLOROQUINE
     Indication: RHEUMATOID ARTHRITIS
  2. ROPINIROLE. [Concomitant]
     Active Substance: ROPINIROLE
     Indication: RESTLESS LEGS SYNDROME
     Dosage: AT HOUR OF SLEEP
  3. VITAMIN B12 [Concomitant]
     Active Substance: CYANOCOBALAMIN
     Indication: FATIGUE
  4. HUMIRA [Suspect]
     Active Substance: ADALIMUMAB
     Dates: start: 2013, end: 20140630
  5. HUMIRA [Suspect]
     Active Substance: ADALIMUMAB
     Indication: RHEUMATOID ARTHRITIS
     Dates: start: 200610, end: 201311
  6. OXAPROZIN. [Concomitant]
     Active Substance: OXAPROZIN
     Indication: PAIN
  7. VITAMIN A D [Concomitant]
     Active Substance: PETROLATUM
     Indication: PRODUCT USED FOR UNKNOWN INDICATION
     Dosage: 500/400 MG
  8. HUMIRA [Suspect]
     Active Substance: ADALIMUMAB
     Dates: start: 20140903

REACTIONS (6)
  - Influenza [Recovered/Resolved]
  - Menorrhagia [Unknown]
  - Dysmenorrhoea [Unknown]
  - Drug effect incomplete [Unknown]
  - Uterine polyp [Unknown]
  - Rheumatoid arthritis [Unknown]

NARRATIVE: CASE EVENT DATE: 201311
